FAERS Safety Report 21962982 (Version 1)
Quarter: 2023Q1

REPORT INFORMATION
  Report Type: Report from Study
  Country: CN (occurrence: CN)
  Receive Date: 20230207
  Receipt Date: 20230207
  Transmission Date: 20230417
  Serious: Yes (Death)
  Sender: FDA-Public Use
  Company Number: CN-PFIZER INC-PV202300020673

PATIENT
  Age: 55 Year
  Sex: Male

DRUGS (3)
  1. VORICONAZOLE [Suspect]
     Active Substance: VORICONAZOLE
     Indication: Aspergillus infection
     Dosage: UNK
  2. BIAPENEM [Suspect]
     Active Substance: BIAPENEM
     Indication: Aspergillus infection
     Dosage: UNK
  3. TEICOPLANIN [Suspect]
     Active Substance: TEICOPLANIN
     Indication: Aspergillus infection
     Dosage: UNK

REACTIONS (1)
  - Drug ineffective [Fatal]

NARRATIVE: CASE EVENT DATE: 20200101
